FAERS Safety Report 8818975 (Version 22)
Quarter: 2015Q2

REPORT INFORMATION
  Report Type: Report from Study
  Country: CA (occurrence: CA)
  Receive Date: 20121001
  Receipt Date: 20150526
  Transmission Date: 20150821
  Serious: Yes (Hospitalization, Other)
  Sender: FDA-Public Use
  Company Number: PHHY2011CA099696

PATIENT
  Age: 52 Year
  Sex: Female

DRUGS (3)
  1. SANDOSTATIN LAR DEPOT [Suspect]
     Active Substance: OCTREOTIDE ACETATE
     Indication: NEUROENDOCRINE TUMOUR
  2. SANDOSTATIN LAR DEPOT [Suspect]
     Active Substance: OCTREOTIDE ACETATE
     Indication: CARCINOID TUMOUR
     Dosage: 20 MG, EVERY 4 WEEKS
     Route: 030
     Dates: start: 20110111
  3. METOPROLOL [Concomitant]
     Active Substance: METOPROLOL
     Indication: PRODUCT USED FOR UNKNOWN INDICATION
     Route: 065

REACTIONS (18)
  - Cardiovascular disorder [Unknown]
  - Diverticulitis [Unknown]
  - Malaise [Unknown]
  - Diarrhoea [Not Recovered/Not Resolved]
  - Abdominal distension [Unknown]
  - Flatulence [Unknown]
  - Liver disorder [Unknown]
  - Paraesthesia [Unknown]
  - Limb discomfort [Unknown]
  - Blood pressure increased [Unknown]
  - Abdominal tenderness [Unknown]
  - Flushing [Not Recovered/Not Resolved]
  - Pain [Recovered/Resolved]
  - Chest pain [Recovering/Resolving]
  - Road traffic accident [Unknown]
  - Neck mass [Recovering/Resolving]
  - Fatigue [Unknown]
  - Abdominal pain [Unknown]

NARRATIVE: CASE EVENT DATE: 20120529
